FAERS Safety Report 9801481 (Version 1)
Quarter: 2014Q1

REPORT INFORMATION
  Report Type: Report from Study
  Country: JP (occurrence: JP)
  Receive Date: 20140107
  Receipt Date: 20140107
  Transmission Date: 20141002
  Serious: Yes (Hospitalization, Other)
  Sender: FDA-Public Use
  Company Number: PHHY2013JP154772

PATIENT
  Age: 53 Year
  Sex: Male

DRUGS (28)
  1. LEPONEX / CLOZARIL [Suspect]
     Indication: SCHIZOPHRENIA
     Dosage: 12.5 MG, DAILY
     Route: 048
     Dates: start: 20130109, end: 20130109
  2. LEPONEX / CLOZARIL [Suspect]
     Dosage: 25 MG, DAILY
     Route: 048
     Dates: start: 20130110, end: 20130112
  3. LEPONEX / CLOZARIL [Suspect]
     Dosage: 50 MG, DAILY
     Route: 048
     Dates: start: 20130113, end: 20130115
  4. LEPONEX / CLOZARIL [Suspect]
     Dosage: 75 MG, DAILY
     Route: 048
     Dates: start: 20130116, end: 20130117
  5. LEPONEX / CLOZARIL [Suspect]
     Dosage: 100 MG, DAILY
     Route: 048
     Dates: start: 20130118, end: 20130119
  6. LEPONEX / CLOZARIL [Suspect]
     Dosage: 125 MG, DAILY
     Route: 048
     Dates: start: 20130120, end: 20130122
  7. LEPONEX / CLOZARIL [Suspect]
     Dosage: 150 MG, DAILY
     Route: 048
     Dates: start: 20130123, end: 20130125
  8. LEPONEX / CLOZARIL [Suspect]
     Dosage: 12.5 MG, DAILY
     Route: 048
     Dates: start: 20130209, end: 20130209
  9. LEPONEX / CLOZARIL [Suspect]
     Dosage: 25 MG, DAILY
     Route: 048
     Dates: start: 20130210, end: 20130212
  10. LEPONEX / CLOZARIL [Suspect]
     Dosage: 50 MG, DAILY
     Route: 048
     Dates: start: 20130213, end: 20130215
  11. LEPONEX / CLOZARIL [Suspect]
     Dosage: 75 MG, DAILY
     Route: 048
     Dates: start: 20130216, end: 20130218
  12. LEPONEX / CLOZARIL [Suspect]
     Dosage: 100 MG, DAILY
     Route: 048
     Dates: start: 20130219, end: 20130222
  13. LEPONEX / CLOZARIL [Suspect]
     Dosage: 125 MG, DAILY
     Route: 048
     Dates: start: 20130223, end: 20130225
  14. LEPONEX / CLOZARIL [Suspect]
     Dosage: 150 MG, DAILY
     Route: 048
     Dates: start: 20130226, end: 20130301
  15. LEPONEX / CLOZARIL [Suspect]
     Dosage: 175 MG, DAILY
     Route: 048
     Dates: start: 20130302, end: 20130304
  16. LEPONEX / CLOZARIL [Suspect]
     Dosage: 75 MG, DAILY
     Route: 048
     Dates: start: 20130305, end: 20130308
  17. ZYPREXA [Concomitant]
     Indication: SCHIZOPHRENIA
     Dosage: 30 MG
     Dates: end: 20130131
  18. ZYPREXA [Concomitant]
     Dosage: 10 MG
     Dates: start: 20130212
  19. ZYPREXA [Concomitant]
     Dosage: 20 MG
     Dates: end: 20130318
  20. RISPERIDONE [Concomitant]
     Indication: SCHIZOPHRENIA
     Dosage: 12 MG
     Dates: end: 20130131
  21. PROPITAN [Concomitant]
     Indication: SCHIZOPHRENIA
     Dosage: 450 MG
     Dates: end: 20130131
  22. TASMOLIN//BIPERIDEN HYDROCHLORIDE [Concomitant]
     Indication: SCHIZOPHRENIA
     Dosage: 3 MG
  23. DEPAKENE [Concomitant]
     Indication: SCHIZOPHRENIA
     Dosage: 1100 MG
  24. SENNOSIDE [Concomitant]
     Indication: SCHIZOPHRENIA
     Dosage: 24 MG
  25. BENZALIN [Concomitant]
     Indication: SCHIZOPHRENIA
     Dosage: 10 MG
  26. BIOFERMIN [Concomitant]
     Indication: PROPHYLAXIS
     Dosage: 18 MG
     Dates: start: 20130201, end: 20130318
  27. OMEPRAZOLE [Concomitant]
     Indication: PROPHYLAXIS
     Dosage: 20 MG
     Dates: start: 20130304, end: 20130318
  28. FERO-GRADUMET [Concomitant]
     Indication: PROPHYLAXIS
     Dosage: 105 MG
     Dates: start: 20130311

REACTIONS (15)
  - Renal disorder [Unknown]
  - Epididymitis [Unknown]
  - Scrotal swelling [Unknown]
  - Balanoposthitis [Unknown]
  - Renal impairment [Unknown]
  - Pneumonia [Recovered/Resolved]
  - Pyrexia [Recovered/Resolved]
  - Haemoglobin decreased [Unknown]
  - Haematocrit decreased [Unknown]
  - Eosinophil count increased [Recovered/Resolved]
  - Blood pressure systolic decreased [Unknown]
  - Blood pressure diastolic decreased [Recovered/Resolved]
  - Blood pressure systolic increased [Unknown]
  - Lymphocyte count decreased [Unknown]
  - White blood cell count increased [Unknown]
